FAERS Safety Report 6970928-7 (Version None)
Quarter: 2010Q3

REPORT INFORMATION
  Report Type: 
  Country: None (occurrence: None)
  Receive Date: 20100908
  Receipt Date: 20100901
  Transmission Date: 20110219
  Serious: Yes (Death, Other)
  Sender: FDA-Public Use
  Company Number: US-JNJFOC-20051100117

PATIENT
  Sex: Male
  Weight: 146.97 kg

DRUGS (15)
  1. RISPERDAL [Suspect]
     Indication: SCHIZOPHRENIA
     Route: 048
  2. RISPERDAL [Suspect]
     Route: 048
  3. RISPERDAL [Suspect]
     Dosage: THREE 2 MG TABLETS AT BEDTIME
     Route: 048
  4. RISPERDAL [Suspect]
     Route: 048
  5. ZYPREXA [Suspect]
     Indication: SCHIZOPHRENIA
     Route: 048
  6. ZYPREXA [Suspect]
     Route: 048
  7. ZYPREXA [Suspect]
     Route: 048
  8. ZYPREXA [Suspect]
     Route: 048
  9. DEPAKOTE ER [Concomitant]
     Dosage: TWO 500 MG TABLETS AT BEDTIME
     Route: 048
  10. DEPAKOTE ER [Concomitant]
     Route: 048
  11. DEPAKOTE ER [Concomitant]
     Route: 048
  12. BENADRYL [Concomitant]
     Route: 048
  13. BENADRYL [Concomitant]
     Dosage: 50 MG IN THE MORNING, 100 MG AT BEDTIME
     Route: 048
  14. DOXYCYCLINE [Concomitant]
     Dosage: ONE EVERY 12 HOURS WITH FOOD
  15. EMETROL [Concomitant]

REACTIONS (9)
  - DEHYDRATION [None]
  - DIABETES MELLITUS [None]
  - DIABETIC COMA [None]
  - DIABETIC KETOACIDOSIS [None]
  - FOOD POISONING [None]
  - HYPERTENSION [None]
  - PAIN [None]
  - PANCREATITIS [None]
  - WEIGHT INCREASED [None]
